FAERS Safety Report 12987694 (Version 1)
Quarter: 2016Q4

REPORT INFORMATION
  Report Type: Spontaneous
  Country: US (occurrence: US)
  Receive Date: 20161130
  Receipt Date: 20161130
  Transmission Date: 20170207
  Serious: Yes (Other)
  Sender: FDA-Public Use
  Company Number: None

PATIENT
  Age: 68 Year
  Sex: Female
  Weight: 127.01 kg

DRUGS (9)
  1. SPECTRAVITE [Concomitant]
  2. CALCIUM [Concomitant]
     Active Substance: CALCIUM
  3. 81 MG ASPIRIN [Concomitant]
  4. ALLEGRA [Concomitant]
     Active Substance: FEXOFENADINE HYDROCHLORIDE
  5. VITAMIN D [Concomitant]
     Active Substance: CHOLECALCIFEROL
  6. VITAMIN B12 [Concomitant]
     Active Substance: CYANOCOBALAMIN
  7. FOLIC ACID. [Concomitant]
     Active Substance: FOLIC ACID
  8. KRILL OIL [Concomitant]
     Active Substance: DIETARY SUPPLEMENT
  9. RECLAST [Suspect]
     Active Substance: ZOLEDRONIC ACID
     Indication: OSTEOPOROSIS
     Dosage: RECLAST - 1/2 HR IV (DATES OF USE - OCT 2015 - 1 TIME USE)
     Route: 042
     Dates: start: 201510

REACTIONS (7)
  - Gait disturbance [None]
  - Pain in extremity [None]
  - Musculoskeletal pain [None]
  - Musculoskeletal disorder [None]
  - Hypoaesthesia [None]
  - Bone swelling [None]
  - Chest pain [None]

NARRATIVE: CASE EVENT DATE: 201510
